FAERS Safety Report 24223116 (Version 1)
Quarter: 2024Q3

REPORT INFORMATION
  Report Type: Spontaneous
  Country: CN (occurrence: CN)
  Receive Date: 20240819
  Receipt Date: 20240819
  Transmission Date: 20241016
  Serious: Yes (Other)
  Sender: PFIZER
  Company Number: CN-PFIZER INC-PV202400106163

PATIENT
  Age: 45 Year
  Sex: Female
  Weight: 69 kg

DRUGS (3)
  1. EPIRUBICIN [Suspect]
     Active Substance: EPIRUBICIN
     Indication: Therapeutic procedure
     Dosage: 130 MG, 1X/DAY
     Route: 042
     Dates: start: 20240508, end: 20240508
  2. TAXOTERE [Suspect]
     Active Substance: DOCETAXEL
     Indication: Therapeutic procedure
     Dosage: 130 MG, 1X/DAY
     Route: 041
     Dates: start: 20240508, end: 20240508
  3. CYCLOPHOSPHAMIDE [Concomitant]
     Active Substance: CYCLOPHOSPHAMIDE
     Indication: Therapeutic procedure
     Dosage: 0.86 G, 1X/DAY
     Route: 042
     Dates: start: 20240508, end: 20240508

REACTIONS (1)
  - Hepatic function abnormal [Unknown]

NARRATIVE: CASE EVENT DATE: 20240529
